FAERS Safety Report 5021688-0 (Version None)
Quarter: 2006Q2

REPORT INFORMATION
  Report Type: 
  Country: None (occurrence: None)
  Receive Date: 20060601
  Receipt Date: 20060310
  Transmission Date: 20061013
  Serious: No
  Sender: FDA-Public Use
  Company Number: 2006PV010071

PATIENT
  Age: 42 Year
  Sex: Female
  Weight: 100.2449 kg

DRUGS (3)
  1. BYETTA [Suspect]
     Indication: DIABETES MELLITUS NON-INSULIN-DEPENDENT
     Dosage: SEE IMAGE
     Route: 058
     Dates: start: 20051001, end: 20051101
  2. BYETTA [Suspect]
     Indication: DIABETES MELLITUS NON-INSULIN-DEPENDENT
     Dosage: SEE IMAGE
     Route: 058
     Dates: start: 20051101
  3. METFORMIN [Concomitant]

REACTIONS (10)
  - BLOOD GLUCOSE DECREASED [None]
  - EARLY SATIETY [None]
  - FEELING ABNORMAL [None]
  - GAIT DISTURBANCE [None]
  - HEADACHE [None]
  - HYPERHIDROSIS [None]
  - NAUSEA [None]
  - PALPITATIONS [None]
  - TREMOR [None]
  - WEIGHT DECREASED [None]
